FAERS Safety Report 19645017 (Version 3)
Quarter: 2021Q3

REPORT INFORMATION
  Report Type: Spontaneous
  Country: US (occurrence: US)
  Receive Date: 20210802
  Receipt Date: 20210928
  Transmission Date: 20211014
  Serious: Yes (Other)
  Sender: FDA-Public Use
  Company Number: US-BAUSCH-BL-2021-022465

PATIENT
  Sex: Female

DRUGS (2)
  1. MESALAMINE EXTENDED?RELEASE CAPSULES [Suspect]
     Active Substance: MESALAMINE
     Indication: CROHN^S DISEASE
     Route: 065
  2. APRISO [Suspect]
     Active Substance: MESALAMINE
     Indication: CROHN^S DISEASE
     Route: 065
     Dates: start: 2003

REACTIONS (7)
  - Disease recurrence [Unknown]
  - Product substitution issue [Unknown]
  - Dyspnoea [Unknown]
  - Lung disorder [Unknown]
  - Drug ineffective [Unknown]
  - Crohn^s disease [Unknown]
  - Insurance issue [Unknown]
